FAERS Safety Report 4442856-2 (Version None)
Quarter: 2004Q3

REPORT INFORMATION
  Report Type: 
  Country: None (occurrence: None)
  Receive Date: 20040903
  Receipt Date: 20040525
  Transmission Date: 20050211
  Serious: Yes (Other)
  Sender: FDA-Public Use
  Company Number: 2004UW10923

PATIENT
  Age: 62 Year
  Sex: Female
  Weight: 60.782 kg

DRUGS (3)
  1. CRESTOR [Suspect]
     Indication: BLOOD CHOLESTEROL INCREASED
     Dosage: 10 MG PO
     Route: 048
     Dates: start: 20040401
  2. NORVASC [Concomitant]
  3. ACIPHEX [Concomitant]

REACTIONS (4)
  - AMNESIA [None]
  - MEMORY IMPAIRMENT [None]
  - MENTAL IMPAIRMENT [None]
  - SPEECH DISORDER [None]
